FAERS Safety Report 16900062 (Version 1)
Quarter: 2019Q4

REPORT INFORMATION
  Report Type: Spontaneous
  Country: US (occurrence: US)
  Receive Date: 20190816
  Receipt Date: 20190816
  Transmission Date: 20200122
  Serious: No
  Sender: FDA-Public Use
  Company Number: None

PATIENT
  Age: 20 Year
  Sex: Female

DRUGS (1)
  1. NEXAVAR [Suspect]
     Active Substance: SORAFENIB
     Indication: TUMOUR PAIN
     Route: 048
     Dates: start: 20190719

REACTIONS (3)
  - Fluid retention [None]
  - Swelling [None]
  - Fatigue [None]

NARRATIVE: CASE EVENT DATE: 20190807
